FAERS Safety Report 24432282 (Version 1)
Quarter: 2024Q4

REPORT INFORMATION
  Report Type: Spontaneous
  Country: JP (occurrence: JP)
  Receive Date: 20241014
  Receipt Date: 20241014
  Transmission Date: 20250114
  Serious: Yes (Death, Hospitalization, Other)
  Sender: Vantive US Healthcare
  Company Number: JP-VANTIVE-2024VAN019571

PATIENT
  Sex: Male

DRUGS (2)
  1. REGUNEAL HCA [Suspect]
     Active Substance: CALCIUM CHLORIDE\DEXTROSE MONOHYDRATE\HYDROCHLORIC ACID\MAGNESIUM CHLORIDE\SODIUM BICARBONATE\SODIUM
     Indication: Renal replacement therapy
     Dosage: 1.5L TWICE DAILY
     Route: 033
  2. EXTRANEAL [Suspect]
     Active Substance: CALCIUM CHLORIDE\ICODEXTRIN\MAGNESIUM CHLORIDE\SODIUM CHLORIDE\SODIUM LACTATE
     Indication: Renal replacement therapy
     Dosage: 1.5L ONCE DAILY
     Route: 033
     Dates: start: 20220415, end: 20240827

REACTIONS (3)
  - Marasmus [Fatal]
  - Dementia [Unknown]
  - Mobility decreased [Unknown]
